FAERS Safety Report 5941004-7 (Version None)
Quarter: 2008Q4

REPORT INFORMATION
  Report Type: 
  Country: None (occurrence: None)
  Receive Date: 20081104
  Receipt Date: 20081030
  Transmission Date: 20090506
  Serious: Yes (Death, Hospitalization, Disabling)
  Sender: FDA-Public Use
  Company Number: PHHY2008BR14880

PATIENT
  Sex: Male
  Weight: 44 kg

DRUGS (87)
  1. SANDIMMUNE [Suspect]
     Indication: PROPHYLAXIS AGAINST GRAFT VERSUS HOST DISEASE
     Dosage: 120 MG, QD
     Route: 042
     Dates: start: 20070726, end: 20070730
  2. SANDIMMUNE [Suspect]
     Dosage: 180 MG, QD
     Dates: start: 20070731, end: 20070802
  3. SANDIMMUNE [Suspect]
     Dosage: 225 MG, QD
     Dates: start: 20070803, end: 20070806
  4. SANDIMMUNE [Suspect]
     Dosage: 270 MG, QD
     Dates: start: 20070807, end: 20070813
  5. SANDIMMUNE [Suspect]
     Dosage: 200 MG, QD
     Dates: start: 20070814, end: 20070820
  6. SANDIMMUNE [Suspect]
     Dosage: 300 MG, QD
     Dates: start: 20070821, end: 20070823
  7. ZOFRAN [Concomitant]
     Dosage: 6 MG
     Dates: start: 20070720, end: 20070806
  8. ZOFRAN [Concomitant]
     Dosage: 8 MG
     Dates: start: 20070807, end: 20070822
  9. ZOFRAN [Concomitant]
     Dosage: 6 MG
     Dates: start: 20070822
  10. ZOFRAN [Concomitant]
     Dosage: 8 MG
     Dates: start: 20070823
  11. ZOFRAN [Concomitant]
     Dosage: 6 MG
     Dates: start: 20070823
  12. ZOFRAN [Concomitant]
     Dosage: 8 MG
     Dates: start: 20070824, end: 20070903
  13. ZOFRAN [Concomitant]
     Dosage: 6 MG
     Dates: start: 20070823
  14. ZOVIRAX [Concomitant]
     Dosage: 630 MG
     Dates: start: 20070723, end: 20070829
  15. ZOLTEC [Concomitant]
     Dosage: 120 MG
     Dates: start: 20070723, end: 20070825
  16. URSACOL [Concomitant]
     Dosage: 300 MG
     Dates: start: 20070719, end: 20070829
  17. URSACOL [Concomitant]
     Dosage: 300 MG
     Dates: start: 20070831, end: 20070903
  18. GRANULOKINE [Concomitant]
     Dosage: 300 MG
     Dates: start: 20070816, end: 20070820
  19. GRANULOKINE [Concomitant]
     Dosage: 300 MG
     Dates: start: 20070823
  20. GRANULOKINE [Concomitant]
     Dosage: 300 MG
     Dates: start: 20070825, end: 20070903
  21. CLARITHROMYCIN [Concomitant]
     Dosage: 300 MG
     Dates: start: 20070816, end: 20070820
  22. CLARITHROMYCIN [Concomitant]
     Dosage: 315 MG
     Dates: start: 20070821, end: 20070824
  23. OMEPRAZOLE [Concomitant]
     Dosage: 30 MG
     Dates: start: 20070809, end: 20070819
  24. OMEPRAZOLE [Concomitant]
     Dosage: 20 MG
     Dates: start: 20070820, end: 20070822
  25. OMEPRAZOLE [Concomitant]
     Dosage: 30 MG
     Dates: start: 20070823
  26. OMEPRAZOLE [Concomitant]
     Dosage: 40 MG
     Dates: start: 20070824, end: 20070826
  27. ALBENDAZOLE [Concomitant]
     Dosage: 400 MG
     Dates: start: 20070711, end: 20070713
  28. DIPYRONE TAB [Concomitant]
     Dosage: 2 ML
     Dates: start: 20070711, end: 20070717
  29. BACTRIM [Concomitant]
     Dosage: 2 AMPOULES
     Dates: start: 20070711
  30. BACTRIM [Concomitant]
     Dosage: 2 AMPOULES
     Dates: start: 20070719, end: 20070722
  31. PLASIL [Concomitant]
     Dosage: 1 AMPOULE
     Dates: start: 20070711
  32. PLASIL [Concomitant]
     Dosage: 8 MG
     Dates: start: 20070809, end: 20070828
  33. CEFEPIME [Concomitant]
     Dosage: 2 G
     Dates: start: 20070711, end: 20070719
  34. CEFEPIME [Concomitant]
     Dosage: 2 G
     Dates: start: 20070727, end: 20070818
  35. VANCOMYCIN HYDROCHLORIDE [Concomitant]
     Dosage: 800 MG
     Dates: start: 20070711
  36. VANCOMYCIN HYDROCHLORIDE [Concomitant]
     Dosage: 400 MG
     Dates: start: 20070712, end: 20070714
  37. VANCOMYCIN HYDROCHLORIDE [Concomitant]
     Dosage: 400 MG
     Dates: start: 20070716, end: 20070718
  38. VANCOMYCIN HYDROCHLORIDE [Concomitant]
     Dosage: 400 MG
     Dates: start: 20070825, end: 20070903
  39. ANTAK [Concomitant]
     Dosage: 150 MG
     Dates: start: 20070712, end: 20070717
  40. RANITIDINE [Concomitant]
     Dosage: 150 MG
     Dates: start: 20070718, end: 20070719
  41. RANITIDINE [Concomitant]
     Dosage: 50 MG
     Dates: start: 20070719, end: 20070808
  42. CYCLOPHOSPHAMIDE [Concomitant]
     Dosage: 2000 MG
     Dates: start: 20070720, end: 20070723
  43. LASIX [Concomitant]
     Dosage: 10 MG
     Dates: start: 20070720, end: 20070725
  44. LASIX [Concomitant]
     Dosage: 10 MG
     Dates: start: 20070812
  45. LASIX [Concomitant]
     Dosage: 20 MG
     Dates: start: 20070817
  46. SOLU-MEDROL [Concomitant]
     Dosage: 80 MG
     Dates: start: 20070720, end: 20070724
  47. ATG                                     /BEL/ [Concomitant]
     Dosage: 80 MG
     Dates: start: 20070720, end: 20070724
  48. PROMETHAZINE [Concomitant]
     Dosage: 12.5 MG
     Dates: start: 20070720, end: 20070724
  49. DIGESAN [Concomitant]
     Dosage: 20 MG
     Dates: start: 20070721
  50. DIGESAN [Concomitant]
     Dosage: 10 MG
     Dates: start: 20070721
  51. DIGESAN [Concomitant]
     Dosage: 10 MG
     Dates: start: 20070722, end: 20070808
  52. AMLODIPINE [Concomitant]
     Dosage: 5 MG
     Dates: start: 20070725
  53. AMLODIPINE [Concomitant]
     Dosage: 2.5 MG
     Dates: start: 20070728, end: 20070821
  54. METHOTREXATE [Concomitant]
     Dosage: 20 MG
     Dates: start: 20070726
  55. METHOTREXATE [Concomitant]
     Dosage: 15 MG
     Dates: start: 20070728
  56. METHOTREXATE [Concomitant]
     Dosage: 15 MG
     Dates: start: 20070731
  57. METHOTREXATE [Concomitant]
     Dosage: 15 MG
     Dates: start: 20070805
  58. LEUCOVORIN CALCIUM [Concomitant]
     Dosage: 20 MG
     Dates: start: 20070727
  59. LEUCOVORIN CALCIUM [Concomitant]
     Dosage: 20 MG
     Dates: start: 20070728
  60. LEUCOVORIN CALCIUM [Concomitant]
     Dosage: 15 MG
     Dates: start: 20070729, end: 20070730
  61. LEUCOVORIN CALCIUM [Concomitant]
     Dosage: 15 MG
     Dates: start: 20070801, end: 20070802
  62. LEUCOVORIN CALCIUM [Concomitant]
     Dosage: 15 MG
     Dates: start: 20070806, end: 20070807
  63. ACETAMINOPHEN [Concomitant]
     Dosage: 500 MG
     Dates: start: 20070728, end: 20070729
  64. MEROPENEM [Concomitant]
     Dosage: 80 MG
     Dates: start: 20070818, end: 20070821
  65. MEROPENEM [Concomitant]
     Dosage: 800 MG
     Dates: start: 20070823, end: 20070903
  66. LORATADINE [Concomitant]
     Dosage: 10 ML
     Dates: start: 20070823, end: 20070825
  67. TACROLIMUS [Concomitant]
     Dosage: 6 MG, BID
     Dates: start: 20070824, end: 20070831
  68. SERTRALINE [Concomitant]
     Dosage: 25 MG
     Dates: start: 20070827, end: 20070828
  69. INSULIN [Concomitant]
     Dosage: 4 UNITS
     Dates: start: 20070829
  70. DORMONID [Concomitant]
     Dosage: 5 MG
     Dates: start: 20070829
  71. KETAMINE HCL [Concomitant]
     Dosage: 10 MG
     Dates: start: 20070829
  72. DOPAMINE HCL [Concomitant]
     Dosage: 240 MG
     Dates: start: 20070829
  73. MIDAZOLAM HCL [Concomitant]
     Dosage: 50 MG
     Dates: start: 20070829
  74. AMIKACIN [Concomitant]
     Dosage: 600 MG
     Dates: start: 20070829, end: 20070903
  75. GANCICLOVIR [Concomitant]
     Dosage: 200 MG
     Dates: start: 20070830, end: 20070903
  76. NORADRENALINE [Concomitant]
     Dosage: 4 ML
     Dates: start: 20070830, end: 20070902
  77. NORADRENALINE [Concomitant]
     Dosage: 7.7 ML
     Dates: start: 20070903
  78. CELLCEPT [Concomitant]
     Dosage: 500 MG, QD
     Dates: start: 20070901, end: 20070902
  79. PHENYTOIN [Concomitant]
     Dosage: 100 MG
     Dates: start: 20070902, end: 20070903
  80. ONDANSETRON HYDROCHLORIDE [Concomitant]
  81. ACYCLOVIR [Concomitant]
  82. FLUCONAZOLE [Concomitant]
  83. URSODIOL [Concomitant]
  84. CARPOFUNGIN [Concomitant]
  85. CALCIUM PHOLINATE [Concomitant]
  86. MESNA [Concomitant]
  87. ACETYLSALICYLIC ACID SRT [Concomitant]

REACTIONS (44)
  - ABDOMINAL PAIN [None]
  - ACUTE RESPIRATORY DISTRESS SYNDROME [None]
  - BLOOD ALBUMIN DECREASED [None]
  - BLOOD CREATININE INCREASED [None]
  - BLOOD MAGNESIUM INCREASED [None]
  - BONE MARROW FAILURE [None]
  - BRADYCARDIA [None]
  - BRAIN OEDEMA [None]
  - CARDIO-RESPIRATORY ARREST [None]
  - COMA [None]
  - COUGH [None]
  - DELUSION [None]
  - DELUSIONAL DISORDER, UNSPECIFIED TYPE [None]
  - DIARRHOEA [None]
  - DISORIENTATION [None]
  - DYSPNOEA [None]
  - EPISTAXIS [None]
  - HAEMORRHAGIC CEREBRAL INFARCTION [None]
  - HALLUCINATION [None]
  - HEADACHE [None]
  - HEPATIC SIDEROSIS [None]
  - HEPATIC STEATOSIS [None]
  - HYPOTENSION [None]
  - IMMUNOSUPPRESSANT DRUG LEVEL INCREASED [None]
  - MECHANICAL VENTILATION [None]
  - MYDRIASIS [None]
  - NAUSEA [None]
  - NEUROGENIC SHOCK [None]
  - NEUROLOGICAL SYMPTOM [None]
  - OXYGEN SATURATION DECREASED [None]
  - PAIN [None]
  - PRODUCT QUALITY ISSUE [None]
  - PYREXIA [None]
  - RENAL TUBULAR NECROSIS [None]
  - RESPIRATORY DEPRESSION [None]
  - SOMNOLENCE [None]
  - TACHYCARDIA [None]
  - TINNITUS [None]
  - TREMOR [None]
  - VASCULITIS [None]
  - VISCERAL CONGESTION [None]
  - VISION BLURRED [None]
  - VISUAL ACUITY REDUCED [None]
  - VOMITING [None]
